FAERS Safety Report 4485030-6 (Version None)
Quarter: 2004Q3

REPORT INFORMATION
  Report Type: 
  Country: None (occurrence: None)
  Receive Date: 20040921
  Receipt Date: 20040218
  Transmission Date: 20050211
  Serious: Yes (Life-Threatening)
  Sender: FDA-Public Use
  Company Number: 163-20785-04020540

PATIENT
  Age: 58 Year
  Sex: Male
  Weight: 68.9467 kg

DRUGS (7)
  1. THALOMID [Suspect]
     Indication: GLIOBLASTOMA
     Dosage: 400 MG, DAILY, ORAL
     Route: 048
     Dates: start: 20031024, end: 20031216
  2. TEMOZOLOMIDE (TEMOZOLOMIDE) [Suspect]
     Indication: GLIOBLASTOMA
     Dosage: 285, DAILY, ORAL
     Route: 048
     Dates: start: 20031024, end: 20031028
  3. CELECOXIB (CELECOXIB) [Concomitant]
  4. DILANTIN [Concomitant]
  5. PROTONIX [Concomitant]
  6. ATIVAN [Concomitant]
  7. SERAX [Concomitant]

REACTIONS (6)
  - DIFFERENTIAL WHITE BLOOD CELL COUNT ABNORMAL [None]
  - DISEASE PROGRESSION [None]
  - HAEMATOCRIT DECREASED [None]
  - HAEMOGLOBIN DECREASED [None]
  - THROMBOCYTOPENIA [None]
  - WHITE BLOOD CELL COUNT DECREASED [None]
